FAERS Safety Report 7428938-1 (Version None)
Quarter: 2011Q2

REPORT INFORMATION
  Report Type: 
  Country: None (occurrence: None)
  Receive Date: 20110421
  Receipt Date: 20110411
  Transmission Date: 20111010
  Serious: Yes (Disabling)
  Sender: FDA-Public Use
  Company Number: DE-JNJFOC-20110405933

PATIENT
  Age: 5 Year
  Sex: Female

DRUGS (1)
  1. TAVANIC [Suspect]
     Indication: DRUG EXPOSURE DURING PREGNANCY
     Route: 064

REACTIONS (2)
  - APHASIA [None]
  - SPEECH DISORDER [None]
